FAERS Safety Report 7970224-5 (Version None)
Quarter: 2011Q4

REPORT INFORMATION
  Report Type: 
  Country: None (occurrence: None)
  Receive Date: 20111212
  Receipt Date: 20111201
  Transmission Date: 20120403
  Serious: Yes (Disabling, Other)
  Sender: FDA-Public Use
  Company Number: GB-AMGEN-GBRSP2011055378

PATIENT
  Age: 47 Year
  Sex: Male
  Weight: 75.8 kg

DRUGS (3)
  1. ETANERCEPT [Suspect]
     Indication: PSORIASIS
  2. ETANERCEPT [Suspect]
     Indication: ANKYLOSING SPONDYLITIS
     Dosage: 50 MG, WEEKLY
     Route: 058
     Dates: start: 20051219
  3. PREDNISOLONE [Concomitant]
     Indication: UVEITIS
     Dosage: 15 MG, 1X/DAY
     Route: 048
     Dates: start: 20100901

REACTIONS (2)
  - UVEITIS [None]
  - CYSTOID MACULAR OEDEMA [None]
